FAERS Safety Report 5691880-0 (Version None)
Quarter: 2008Q1

REPORT INFORMATION
  Report Type: 
  Country: None (occurrence: None)
  Receive Date: 20080331
  Receipt Date: 20080318
  Transmission Date: 20080703
  Serious: Yes (Other)
  Sender: FDA-Public Use
  Company Number: 107#03#2008-01639

PATIENT
  Age: 46 Year
  Sex: Female

DRUGS (2)
  1. MIRTAZAPINE [Suspect]
     Indication: DEPRESSION
     Dosage: 15 MG ORAL
     Route: 048
     Dates: start: 20080220, end: 20080302
  2. CITALOPRAM HYDROBROMIDE [Concomitant]

REACTIONS (4)
  - DIARRHOEA [None]
  - HYPOAESTHESIA [None]
  - MYALGIA [None]
  - PANIC ATTACK [None]
